FAERS Safety Report 9544005 (Version 1)
Quarter: 2013Q3

REPORT INFORMATION
  Report Type: Spontaneous
  Country: NL (occurrence: NL)
  Receive Date: 20130923
  Receipt Date: 20130923
  Transmission Date: 20140515
  Serious: Yes (Other)
  Sender: FDA-Public Use
  Company Number: NL-BAXTER-2013BAX036348

PATIENT
  Age: 71 Year
  Sex: Female

DRUGS (8)
  1. MANNITOL 10%, OPLOSSING VOOR INTRAVENEUZE INFUSIE 100 G/L [Suspect]
     Indication: COMPLEX REGIONAL PAIN SYNDROME
     Route: 042
  2. MANNITOL 10%, OPLOSSING VOOR INTRAVENEUZE INFUSIE 100 G/L [Suspect]
     Route: 042
  3. NATRIUMCHLORIDE 0.45% + GLUCOSE 2.5%, OPLOSSING VOOR INTRAVENEUZE INFU [Suspect]
     Indication: COMPLEX REGIONAL PAIN SYNDROME
     Route: 065
  4. ENALAPRIL [Concomitant]
     Indication: CARDIAC FAILURE CONGESTIVE
     Route: 065
  5. BUMETANIDE [Concomitant]
     Indication: CARDIAC FAILURE CONGESTIVE
     Route: 065
  6. DIGOXIN [Concomitant]
     Indication: PRODUCT USED FOR UNKNOWN INDICATION
     Route: 065
  7. ACENOCOUMAROL [Concomitant]
     Indication: PRODUCT USED FOR UNKNOWN INDICATION
     Route: 065
  8. INSULIN [Concomitant]
     Indication: PRODUCT USED FOR UNKNOWN INDICATION
     Route: 065

REACTIONS (6)
  - Renal failure acute [Recovered/Resolved]
  - Cardiomegaly [Unknown]
  - Angina pectoris [Unknown]
  - Pulmonary congestion [Unknown]
  - Dyspnoea [Unknown]
  - Nausea [Unknown]
